FAERS Safety Report 9316244 (Version 3)
Quarter: 2013Q2

REPORT INFORMATION
  Report Type: Report from Study
  Country: CZ (occurrence: CZ)
  Receive Date: 20130530
  Receipt Date: 20130607
  Transmission Date: 20140414
  Serious: Yes (Life-Threatening, Hospitalization, Disabling)
  Sender: FDA-Public Use
  Company Number: CZ-ROCHE-1229160

PATIENT
  Age: 87 Year
  Sex: Female

DRUGS (7)
  1. RANIBIZUMAB [Suspect]
     Indication: AGE-RELATED MACULAR DEGENERATION
     Route: 050
     Dates: start: 20120116
  2. ASACOL [Concomitant]
  3. ANOPYRIN [Concomitant]
     Route: 065
  4. HUMULIN [Concomitant]
  5. PRESTANCE [Concomitant]
     Dosage: 5/10 MG
     Route: 065
  6. LOKREN [Concomitant]
  7. URSOFALK [Concomitant]

REACTIONS (1)
  - Myocardial infarction [Recovered/Resolved]
